FAERS Safety Report 14089699 (Version 1)
Quarter: 2017Q4

REPORT INFORMATION
  Report Type: Spontaneous
  Country: US (occurrence: US)
  Receive Date: 20171014
  Receipt Date: 20171014
  Transmission Date: 20180321
  Serious: Yes (Other)
  Sender: FDA-Public Use
  Company Number: PHEH2017US032333

PATIENT
  Sex: Male
  Weight: 65.7 kg

DRUGS (1)
  1. ENTRESTO [Suspect]
     Active Substance: SACUBITRIL\VALSARTAN
     Indication: CARDIAC FAILURE CHRONIC
     Dosage: 50 MG, BID
     Route: 048
     Dates: start: 20170315, end: 20171003

REACTIONS (5)
  - Lethargy [Unknown]
  - Fall [Unknown]
  - Hypotension [Recovering/Resolving]
  - Dizziness [Unknown]
  - Weight decreased [Unknown]
